FAERS Safety Report 4776440-8 (Version None)
Quarter: 2005Q3

REPORT INFORMATION
  Report Type: 
  Country: None (occurrence: None)
  Receive Date: 20050915
  Receipt Date: 20050907
  Transmission Date: 20060218
  Serious: Yes (Hospitalization)
  Sender: FDA-Public Use
  Company Number: 05H-124-0302369-00

PATIENT
  Age: 35 Year
  Sex: Female

DRUGS (1)
  1. ABOCAIN INJECTION (BUPIVACAINE HYDROCHLORIDE INJECTION) (BUPIVACAINE H [Suspect]
     Indication: ANAESTHESIA
     Dosage: INTRATHECAL
     Route: 037

REACTIONS (5)
  - AGITATION [None]
  - DISORIENTATION [None]
  - HYPOGLYCAEMIA [None]
  - POST PROCEDURAL COMPLICATION [None]
  - RESTLESSNESS [None]
